FAERS Safety Report 17022677 (Version 1)
Quarter: 2019Q4

REPORT INFORMATION
  Report Type: Spontaneous
  Country: ES (occurrence: ES)
  Receive Date: 20191112
  Receipt Date: 20191112
  Transmission Date: 20200122
  Serious: Yes (Other)
  Sender: FDA-Public Use
  Company Number: ES-MYLANLABS-2019M1107119

PATIENT
  Age: 40 Year
  Sex: Female
  Weight: 65 kg

DRUGS (8)
  1. ONDANSETRON [Concomitant]
     Active Substance: ONDANSETRON
     Indication: SHORT-BOWEL SYNDROME
     Dosage: 4 MG IF REQUIRED
  2. SODIUM BICARBONATE. [Concomitant]
     Active Substance: SODIUM BICARBONATE
     Indication: SHORT-BOWEL SYNDROME
     Dosage: 500 MG/8 H
  3. CHOLESTYRAMINE. [Concomitant]
     Active Substance: CHOLESTYRAMINE
     Indication: SHORT-BOWEL SYNDROME
     Dosage: 4 GRAM, QD
  4. PHYTOMENADIONE [Concomitant]
     Active Substance: PHYTONADIONE
     Indication: SHORT-BOWEL SYNDROME
     Dosage: 10 GRAM, Q8H
     Route: 042
  5. PLANTAGO OVATA [Concomitant]
     Active Substance: HERBALS\PLANTAGO OVATA LEAF
     Indication: SHORT-BOWEL SYNDROME
     Dosage: 4 GRAM, Q8H
  6. LOPERAMIDE [Concomitant]
     Active Substance: LOPERAMIDE
     Indication: SHORT-BOWEL SYNDROME
     Dosage: 1 DOSAGE FORM, Q6H
  7. GLYCINE MAX OIL W/TRIGLYCERIDES [Concomitant]
     Indication: SHORT-BOWEL SYNDROME
  8. OMEPRAZOLE. [Suspect]
     Active Substance: OMEPRAZOLE
     Indication: SHORT-BOWEL SYNDROME
     Dosage: 40 MG/12 H
     Route: 048

REACTIONS (3)
  - Jaundice [Unknown]
  - Off label use [Unknown]
  - Septic shock [Unknown]
